FAERS Safety Report 24774876 (Version 1)
Quarter: 2024Q4

REPORT INFORMATION
  Report Type: Spontaneous
  Country: GB (occurrence: GB)
  Receive Date: 20241226
  Receipt Date: 20241226
  Transmission Date: 20250114
  Serious: Yes (Other)
  Sender: TEVA
  Company Number: None

PATIENT
  Age: 56 Year
  Sex: Female
  Weight: 57 kg

DRUGS (2)
  1. DOXYCYCLINE [Suspect]
     Active Substance: DOXYCYCLINE
     Indication: Product used for unknown indication
     Dosage: 100MG CAPSULES?TWO NOW THEN ONE DAILY
     Route: 065
     Dates: start: 20241209
  2. ALBUTEROL [Concomitant]
     Active Substance: ALBUTEROL
     Indication: Product used for unknown indication
     Dosage: INHALE 2 DOSES AS NEEDED
     Route: 065
     Dates: start: 20241202

REACTIONS (3)
  - Swollen tongue [Recovering/Resolving]
  - Glossodynia [Unknown]
  - Tongue erythema [Recovering/Resolving]
